FAERS Safety Report 9756172 (Version 1)
Quarter: 2013Q4

REPORT INFORMATION
  Report Type: Spontaneous
  Country: US (occurrence: US)
  Receive Date: 20131213
  Receipt Date: 20131213
  Transmission Date: 20140711
  Serious: No
  Sender: FDA-Public Use
  Company Number: US-GLAXOSMITHKLINE-A1034162A

PATIENT
  Sex: Female

DRUGS (3)
  1. NICODERM CQ PATCH, CLEAR [Suspect]
     Indication: PRODUCT USED FOR UNKNOWN INDICATION
     Route: 062
  2. VENTOLIN [Concomitant]
  3. SYMBICORT [Concomitant]

REACTIONS (4)
  - Dermatitis contact [Recovering/Resolving]
  - Application site rash [Not Recovered/Not Resolved]
  - Application site erythema [Not Recovered/Not Resolved]
  - Application site pruritus [Recovered/Resolved]
